FAERS Safety Report 12548103 (Version 1)
Quarter: 2016Q3

REPORT INFORMATION
  Report Type: Spontaneous
  Country: US (occurrence: None)
  Receive Date: 20160711
  Receipt Date: 20160711
  Transmission Date: 20161109
  Serious: Yes (Other)
  Sender: FDA-Public Use
  Company Number: None

PATIENT
  Age: 26 Year
  Sex: Female
  Weight: 72.58 kg

DRUGS (1)
  1. NEXPLANON [Suspect]
     Active Substance: ETONOGESTREL
     Indication: CONTRACEPTION
     Dosage: CONTINUOUS GIVEN INTO/UNDER THE SKIN
     Route: 058
     Dates: start: 20140701

REACTIONS (4)
  - Muscle spasms [None]
  - Abdominal distension [None]
  - Menorrhagia [None]
  - Breast tenderness [None]

NARRATIVE: CASE EVENT DATE: 20160201
